FAERS Safety Report 9453735 (Version 1)
Quarter: 2013Q3

REPORT INFORMATION
  Report Type: Report from Study
  Country: BR (occurrence: BR)
  Receive Date: 20130812
  Receipt Date: 20130812
  Transmission Date: 20140515
  Serious: Yes (Other)
  Sender: FDA-Public Use
  Company Number: PHHY2013BR086320

PATIENT
  Sex: Male

DRUGS (2)
  1. GALVUS MET [Suspect]
     Dosage: 1 DF, (1000 MG METF/ 50 MG VILDA)
  2. RASILEZ HCT [Suspect]
     Dosage: 1 DF, (300 MG ALISK/ 12,5 MG HYDRO)

REACTIONS (1)
  - Drug dependence [Unknown]
